FAERS Safety Report 14028838 (Version 1)
Quarter: 2017Q4

REPORT INFORMATION
  Report Type: Spontaneous
  Country: US (occurrence: None)
  Receive Date: 20171002
  Receipt Date: 20171002
  Transmission Date: 20180321
  Serious: Yes (Disabling)
  Sender: FDA-Public Use
  Company Number: None

PATIENT
  Age: 53 Year
  Sex: Female
  Weight: 46.27 kg

DRUGS (1)
  1. INVEGA [Suspect]
     Active Substance: PALIPERIDONE
     Indication: PRODUCT USED FOR UNKNOWN INDICATION
     Dates: start: 20161216

REACTIONS (12)
  - Restlessness [None]
  - Impaired driving ability [None]
  - Poor quality sleep [None]
  - Dyspnoea [None]
  - Pain in extremity [None]
  - Impaired work ability [None]
  - Balance disorder [None]
  - Dizziness [None]
  - Tendonitis [None]
  - Burning sensation [None]
  - Eye pain [None]
  - Headache [None]

NARRATIVE: CASE EVENT DATE: 20170101
